FAERS Safety Report 6576435-8 (Version None)
Quarter: 2010Q1

REPORT INFORMATION
  Report Type: 
  Country: None (occurrence: None)
  Receive Date: 20100210
  Receipt Date: 20100127
  Transmission Date: 20100710
  Serious: Yes (Death)
  Sender: FDA-Public Use
  Company Number: PHHY2010DE02668

PATIENT
  Sex: Male
  Weight: 110 kg

DRUGS (10)
  1. RASILEZ HCT [Suspect]
     Indication: HYPERTENSION
     Dosage: 150/12.5 MG
     Dates: start: 20090220
  2. ENALAPRIL MALEATE [Concomitant]
     Indication: HYPERTENSION
     Dosage: 10 MG/DAY
     Dates: start: 20090222
  3. DIURETICS [Concomitant]
  4. NSAR [Concomitant]
  5. ALLOPURINOL [Concomitant]
     Indication: HYPERURICAEMIA
     Dosage: 100 MG/D
     Dates: start: 20090302
  6. SIMVASTATIN [Concomitant]
     Indication: HYPERLIPIDAEMIA
     Dosage: 80 MG/D
     Dates: start: 20080410
  7. AMLODIPINE [Concomitant]
     Indication: HYPERTENSION
     Dosage: UNK
     Dates: start: 20090201
  8. RAMIPRIL [Concomitant]
     Indication: HYPERTENSION
     Dosage: 10 MG/D
     Dates: start: 20061017
  9. ASPIRIN [Concomitant]
     Indication: HYPERTENSION
     Dosage: 10 MG/D
     Dates: start: 20030303
  10. METOPROLOL TARTRATE [Concomitant]
     Indication: HYPERTENSION
     Dosage: 100 MG/D
     Dates: start: 20070910

REACTIONS (2)
  - CARDIAC DEATH [None]
  - HEAD INJURY [None]
